FAERS Safety Report 8773199 (Version 2)
Quarter: 2012Q4

REPORT INFORMATION
  Report Type: 
  Country: US (occurrence: US)
  Receive Date: 20120907
  Receipt Date: 20120917
  Transmission Date: 20130627
  Serious: Yes (Other)
  Sender: FDA-Public Use
  Company Number: US-ROCHE-1106990

PATIENT
  Age: 64 Year
  Sex: Male
  Weight: 151.64 kg

DRUGS (26)
  1. XOLAIR [Suspect]
     Indication: ASTHMA
     Route: 058
     Dates: start: 20120601, end: 20120817
  2. AVELOX [Suspect]
     Indication: UPPER RESPIRATORY TRACT INFECTION
     Dosage: X 7 DYAS
     Route: 048
     Dates: start: 20120727
  3. MEDROL DOSEPAK [Concomitant]
     Route: 048
  4. EPIPEN [Concomitant]
     Indication: ANAPHYLACTIC REACTION
     Route: 030
  5. PROAIR (UNITED STATES) [Concomitant]
     Route: 065
  6. PROTONIX [Concomitant]
     Route: 048
  7. QVAR [Concomitant]
     Dosage: 2 PUFF
     Route: 045
  8. PATANASE NASAL SPRAY [Concomitant]
     Route: 045
  9. CARAFATE [Concomitant]
     Dosage: EMPTY STOMACH 1 HOUR BEFORE MEAL AT BED TIME
     Route: 048
  10. MUCINEX [Concomitant]
     Route: 048
  11. PROCARDIA XL [Concomitant]
     Route: 048
  12. TERAZOSIN [Concomitant]
     Dosage: AT BED TIME
     Route: 048
  13. MAGNESIUM OXIDE [Concomitant]
     Route: 048
  14. LORTAB [Concomitant]
  15. TOPROL XL [Concomitant]
     Route: 048
  16. BYETTA [Concomitant]
  17. GLYBURIDE [Concomitant]
     Route: 048
  18. GLUCOPHAGE [Concomitant]
     Route: 048
  19. NORFLEX [Concomitant]
     Route: 048
  20. ACCUPRIL [Concomitant]
     Route: 048
  21. ASPIRIN [Concomitant]
     Route: 048
  22. LASIX [Concomitant]
     Route: 048
  23. SINGULAIR [Concomitant]
     Route: 048
  24. CRESTOR [Concomitant]
     Route: 048
  25. NOVOLOG [Concomitant]
     Dosage: 100 UNIT/ML
     Route: 058
  26. KLOR-CON [Concomitant]
     Route: 048

REACTIONS (6)
  - Swelling face [Recovered/Resolved]
  - Urticaria [Recovered/Resolved]
  - Swelling [Recovered/Resolved]
  - Eye swelling [Recovered/Resolved]
  - Rash [Unknown]
  - Local reaction [Unknown]
